FAERS Safety Report 13075372 (Version 2)
Quarter: 2017Q1

REPORT INFORMATION
  Report Type: Spontaneous
  Country: JP (occurrence: JP)
  Receive Date: 20161230
  Receipt Date: 20170131
  Transmission Date: 20170428
  Serious: Yes (Hospitalization, Other)
  Sender: FDA-Public Use
  Company Number: JP-GLAXOSMITHKLINE-JP2016JPN180056

PATIENT
  Age: 12 Year
  Sex: Male
  Weight: 30 kg

DRUGS (3)
  1. RELENZA [Suspect]
     Active Substance: ZANAMIVIR
     Indication: INFLUENZA
     Dosage: 10 MG, BID
     Route: 055
     Dates: start: 20161130, end: 201612
  2. CELESTAMIN [Concomitant]
     Indication: RHINITIS
     Dosage: 2 DF, BID
     Dates: start: 20161130, end: 20161204
  3. CALONAL [Concomitant]
     Active Substance: ACETAMINOPHEN
     Indication: ANTIPYRESIS
     Dosage: 400 MG, BID
     Dates: start: 20161130, end: 20161204

REACTIONS (5)
  - Abnormal behaviour [Recovering/Resolving]
  - Encephalopathy [Recovering/Resolving]
  - Hallucination [Unknown]
  - Hallucination, auditory [Unknown]
  - Delusion [Unknown]

NARRATIVE: CASE EVENT DATE: 20161202
